FAERS Safety Report 23302938 (Version 1)
Quarter: 2023Q4

REPORT INFORMATION
  Report Type: Spontaneous
  Country: US (occurrence: US)
  Receive Date: 20231215
  Receipt Date: 20231215
  Transmission Date: 20240109
  Serious: No
  Sender: FDA-Public Use
  Company Number: US-PRIMUS-2023-US-029116

PATIENT
  Age: 80 Year
  Sex: Male

DRUGS (1)
  1. IMPOYZ [Suspect]
     Active Substance: CLOBETASOL PROPIONATE
     Indication: Product used for unknown indication
     Dosage: APPLY TOPICALLY TO THE AFFECTED AREA(S) ON SKIN TWICE A DAY 2 WEEKS ON, 1 WEEK OFF, AS NEEDED FOR FL
     Route: 061

REACTIONS (1)
  - Drug ineffective [Not Recovered/Not Resolved]
